FAERS Safety Report 24382092 (Version 1)
Quarter: 2024Q4

REPORT INFORMATION
  Report Type: Spontaneous
  Country: US (occurrence: US)
  Receive Date: 20241001
  Receipt Date: 20241001
  Transmission Date: 20250114
  Serious: Yes (Other)
  Sender: APOTEX
  Company Number: US-APOTEX-2024AP011319

PATIENT
  Age: 20 Year
  Sex: Male

DRUGS (5)
  1. CYCLOSPORINE [Suspect]
     Active Substance: CYCLOSPORINE
     Indication: CTLA4 deficiency
     Dosage: 275 MILLIGRAM, BID
     Route: 065
  2. CYCLOSPORINE [Suspect]
     Active Substance: CYCLOSPORINE
     Dosage: 175 MILLIGRAM, B.I.WK.
     Route: 065
  3. SIROLIMUS [Suspect]
     Active Substance: SIROLIMUS
     Indication: CTLA4 deficiency
     Dosage: 5 MILLIGRAM, QD
     Route: 065
  4. HUMAN IMMUNOGLOBULIN G [Concomitant]
     Active Substance: HUMAN IMMUNOGLOBULIN G
     Indication: CTLA4 deficiency
     Dosage: 1 G/KG ? 2 DOSES
     Route: 065
  5. CORTICOSTEROID NOS [Concomitant]
     Active Substance: CORTICOSTEROID NOS
     Indication: CTLA4 deficiency
     Dosage: 30 MILLIGRAM, QD
     Route: 065

REACTIONS (2)
  - Renal impairment [Unknown]
  - Drug intolerance [Unknown]
